FAERS Safety Report 10807087 (Version 1)
Quarter: 2015Q1

REPORT INFORMATION
  Report Type: Report from Study
  Country: US (occurrence: US)
  Receive Date: 20150217
  Receipt Date: 20150217
  Transmission Date: 20150721
  Serious: No
  Sender: FDA-Public Use
  Company Number: US-ABBVIE-14K-163-1253735-00

PATIENT
  Age: 51 Year
  Sex: Female

DRUGS (4)
  1. HUMIRA [Suspect]
     Active Substance: ADALIMUMAB
     Indication: CROHN^S DISEASE
     Dates: start: 20131024, end: 20131024
  2. HUMIRA [Suspect]
     Active Substance: ADALIMUMAB
  3. HUMIRA [Suspect]
     Active Substance: ADALIMUMAB
     Dates: start: 20131107, end: 20131107
  4. UNKNOWN HORMONE REPLACEMENT THERAPY PELLETS [Concomitant]
     Indication: PRODUCT USED FOR UNKNOWN INDICATION
     Dosage: PLACED IN HIP

REACTIONS (6)
  - Impaired healing [Not Recovered/Not Resolved]
  - Contusion [Not Recovered/Not Resolved]
  - Skin atrophy [Not Recovered/Not Resolved]
  - Device issue [Unknown]
  - Blister [Not Recovered/Not Resolved]
  - Laceration [Not Recovered/Not Resolved]

NARRATIVE: CASE EVENT DATE: 20131024
